FAERS Safety Report 4612008-1 (Version None)
Quarter: 2005Q1

REPORT INFORMATION
  Report Type: 
  Country: None (occurrence: None)
  Receive Date: 20050317
  Receipt Date: 20041217
  Transmission Date: 20050727
  Serious: Yes (Hospitalization)
  Sender: FDA-Public Use
  Company Number: US-MERCK-0412USA02480

PATIENT
  Age: 59 Year
  Sex: Male
  Weight: 99 kg

DRUGS (6)
  1. VIOXX [Suspect]
     Indication: ARTHRITIS
     Route: 048
     Dates: start: 20000901, end: 20041001
  2. CORGARD [Concomitant]
     Route: 065
  3. HYDRODIURIL [Concomitant]
     Route: 048
  4. ALTACE [Concomitant]
     Route: 065
  5. NEXIUM [Concomitant]
     Route: 065
  6. GLIPIZIDE [Concomitant]
     Route: 065

REACTIONS (26)
  - ANGER [None]
  - BENIGN PROSTATIC HYPERPLASIA [None]
  - CAROTID ARTERY STENOSIS [None]
  - CEREBELLAR INFARCTION [None]
  - CEREBRAL INFARCTION [None]
  - CEREBROVASCULAR DISORDER [None]
  - CERVICOBRACHIAL SYNDROME [None]
  - CHRONIC OBSTRUCTIVE PULMONARY DISEASE [None]
  - CIRCUMCISION [None]
  - CORONARY ARTERY DISEASE [None]
  - DEPRESSION [None]
  - FATIGUE [None]
  - FEELING ABNORMAL [None]
  - GLUCOSE TOLERANCE IMPAIRED [None]
  - HEADACHE [None]
  - HYPOKALAEMIA [None]
  - INFLUENZA [None]
  - INTERVERTEBRAL DISC DEGENERATION [None]
  - INTERVERTEBRAL DISC PROTRUSION [None]
  - NEURALGIA [None]
  - PITTING OEDEMA [None]
  - RADICULITIS [None]
  - SINUS BRADYCARDIA [None]
  - STRESS [None]
  - TINNITUS [None]
  - WEIGHT INCREASED [None]
